FAERS Safety Report 22000789 (Version 4)
Quarter: 2023Q2

REPORT INFORMATION
  Report Type: Spontaneous
  Country: JP (occurrence: None)
  Receive Date: 20230216
  Receipt Date: 20230421
  Transmission Date: 20230722
  Serious: Yes (Hospitalization, Other)
  Sender: FDA-Public Use
  Company Number: 2023A036475

PATIENT
  Age: 84 Year
  Sex: Female
  Weight: 39 kg

DRUGS (15)
  1. TEZSPIRE [Suspect]
     Active Substance: TEZEPELUMAB-EKKO
     Indication: Asthma
     Route: 058
     Dates: start: 20221228, end: 20230127
  2. SYMBICORT [Concomitant]
     Active Substance: BUDESONIDE\FORMOTEROL FUMARATE DIHYDRATE
     Indication: Asthma
     Route: 055
  3. BEROTEC [Concomitant]
     Active Substance: FENOTEROL HYDROBROMIDE
     Indication: Asthma
     Dosage: DOSE UNKNOWN
     Route: 065
  4. PREDONINE [Concomitant]
     Active Substance: PREDNISOLONE
     Indication: Asthma
     Route: 048
  5. MONTELUKAST [Concomitant]
     Active Substance: MONTELUKAST SODIUM
     Indication: Asthma
     Route: 048
  6. DILTIAZEM HYDROCHLORIDE [Concomitant]
     Active Substance: DILTIAZEM HYDROCHLORIDE
     Indication: Atrial fibrillation
     Route: 048
  7. PITAVASTATIN CALCIUM [Concomitant]
     Active Substance: PITAVASTATIN CALCIUM
     Indication: Coronary artery stenosis
     Route: 048
     Dates: start: 2019
  8. VONOPRAZAN FUMARATE [Concomitant]
     Active Substance: VONOPRAZAN FUMARATE
     Indication: Coronary artery stenosis
     Route: 048
  9. AMBROXOL HYDROCHLORIDE [Concomitant]
     Active Substance: AMBROXOL HYDROCHLORIDE
     Indication: Asthma
     Route: 048
  10. AZOSEMIDE [Concomitant]
     Active Substance: AZOSEMIDE
     Indication: Atrial fibrillation
     Route: 048
  11. FEBUXOSTAT [Concomitant]
     Active Substance: FEBUXOSTAT
     Indication: Coronary artery stenosis
     Route: 048
  12. EDOXABAN TOSYLATE [Concomitant]
     Active Substance: EDOXABAN TOSYLATE
     Indication: Atrial fibrillation
     Route: 048
  13. ELDECALCITOL [Concomitant]
     Active Substance: ELDECALCITOL
     Indication: Osteoporosis
     Route: 048
  14. XOLAIR [Concomitant]
     Active Substance: OMALIZUMAB
     Route: 065
     Dates: start: 2017
  15. XOLAIR [Concomitant]
     Active Substance: OMALIZUMAB
     Route: 065

REACTIONS (5)
  - Cardiac failure [Recovering/Resolving]
  - Microcytic anaemia [Recovering/Resolving]
  - Bronchitis [Recovering/Resolving]
  - Nasopharyngitis [Recovered/Resolved]
  - Occult blood [Unknown]

NARRATIVE: CASE EVENT DATE: 20230203
